FAERS Safety Report 9472285 (Version 2)
Quarter: 2013Q4

REPORT INFORMATION
  Report Type: Spontaneous
  Country: JP (occurrence: JP)
  Receive Date: 20130823
  Receipt Date: 20131230
  Transmission Date: 20140711
  Serious: Yes (Hospitalization)
  Sender: FDA-Public Use
  Company Number: JP-GE HEALTHCARE MEDICAL DIAGNOSTICS-OMPQ-PR-1308S-1037

PATIENT
  Age: 79 Year
  Sex: Female

DRUGS (2)
  1. OMNIPAQUE [Suspect]
     Indication: HIP SURGERY
     Route: 042
     Dates: start: 20130807, end: 20130807
  2. OMNIPAQUE [Suspect]
     Indication: DIAGNOSTIC PROCEDURE

REACTIONS (3)
  - Hyperthermia [Recovered/Resolved]
  - Generalised erythema [Recovering/Resolving]
  - Pruritus [Recovering/Resolving]
